FAERS Safety Report 18353123 (Version 1)
Quarter: 2020Q4

REPORT INFORMATION
  Report Type: Spontaneous
  Country: IT (occurrence: IT)
  Receive Date: 20201007
  Receipt Date: 20201007
  Transmission Date: 20210114
  Serious: Yes (Life-Threatening, Hospitalization, Other)
  Sender: FDA-Public Use
  Company Number: IT-TEVA-2020-IT-1835312

PATIENT
  Age: 62 Year
  Sex: Male

DRUGS (1)
  1. AMOXICILLIN. [Suspect]
     Active Substance: AMOXICILLIN
     Indication: ANTIBIOTIC PROPHYLAXIS
     Route: 048

REACTIONS (10)
  - Ventricular extrasystoles [Unknown]
  - Cyanosis [Recovering/Resolving]
  - Kounis syndrome [Recovering/Resolving]
  - Hypoxia [Recovered/Resolved]
  - Dyspnoea [Recovering/Resolving]
  - Hypercapnia [Recovered/Resolved]
  - Supraventricular extrasystoles [Unknown]
  - Coma [Recovered/Resolved]
  - Cardiac arrest [Recovered/Resolved]
  - Metabolic acidosis [Recovered/Resolved]
